FAERS Safety Report 5299759-3 (Version None)
Quarter: 2007Q2

REPORT INFORMATION
  Report Type: 
  Country: None (occurrence: None)
  Receive Date: 20070410
  Receipt Date: 20060918
  Transmission Date: 20071010
  Serious: Yes (Life-Threatening)
  Sender: FDA-Public Use
  Company Number: BRO-010597

PATIENT
  Age: 59 Year
  Sex: Female

DRUGS (1)
  1. ISOVUE-370 [Suspect]
     Dosage: 70 ML ONCE IV
     Route: 042
     Dates: start: 20060915, end: 20060915

REACTIONS (1)
  - BRONCHOSPASM [None]
